FAERS Safety Report 19372675 (Version 1)
Quarter: 2021Q2

REPORT INFORMATION
  Report Type: Spontaneous
  Country: SE (occurrence: SE)
  Receive Date: 20210604
  Receipt Date: 20210604
  Transmission Date: 20210717
  Serious: Yes (Congenital Anomaly, Other)
  Sender: FDA-Public Use
  Company Number: NVSC2021SE117912

PATIENT

DRUGS (2)
  1. LAMOTRIGINE. [Suspect]
     Active Substance: LAMOTRIGINE
     Indication: FOETAL EXPOSURE DURING PREGNANCY
     Dosage: UNK (MOTHER DOSE: UNKNOWN)
     Route: 064
  2. PHENOBARBITAL SODIUM. [Suspect]
     Active Substance: PHENOBARBITAL SODIUM
     Indication: FOETAL EXPOSURE DURING PREGNANCY
     Dosage: UNK (MOTHER DOSE: 100 MG, QD)
     Route: 064

REACTIONS (3)
  - Foetal exposure during pregnancy [Unknown]
  - Double inlet left ventricle [Unknown]
  - Turner^s syndrome [Unknown]
